FAERS Safety Report 14924317 (Version 3)
Quarter: 2018Q2

REPORT INFORMATION
  Report Type: Report from Study
  Country: JP (occurrence: JP)
  Receive Date: 20180522
  Receipt Date: 20180613
  Transmission Date: 20180711
  Serious: Yes (Hospitalization)
  Sender: FDA-Public Use
  Company Number: JP-EISAI MEDICAL RESEARCH-EC-2018-040029

PATIENT
  Age: 54 Year
  Sex: Male
  Weight: 70 kg

DRUGS (15)
  1. ERIBULIN [Suspect]
     Active Substance: ERIBULIN
     Route: 041
     Dates: start: 20180426
  2. PARIET [Concomitant]
     Active Substance: RABEPRAZOLE SODIUM
  3. LEVOFLOXACIN HEMIHYDRATE [Concomitant]
     Active Substance: LEVOFLOXACIN
  4. RINDERON V [Concomitant]
     Active Substance: BETAMETHASONE VALERATE
  5. NERIPROCT [Concomitant]
     Active Substance: DIFLUCORTOLONE VALERATE\LIDOCAINE
  6. APIDRA [Concomitant]
     Active Substance: INSULIN GLULISINE
  7. HEPARINOID [Concomitant]
     Active Substance: CHONDROITIN SULFATE (BOVINE)
  8. LOXOPROFEN [Concomitant]
     Active Substance: LOXOPROFEN
  9. URSODEOXYCHOLIC ACID [Concomitant]
     Active Substance: URSODIOL
  10. AZ [Concomitant]
  11. NAIXAN [Concomitant]
     Active Substance: NAPROXEN SODIUM
  12. ERIBULIN [Suspect]
     Active Substance: ERIBULIN
     Indication: RECTAL CANCER
     Route: 041
     Dates: start: 20180405, end: 20180412
  13. MYSER [Concomitant]
     Active Substance: DIFLUPREDNATE
  14. OXYCONTIN [Concomitant]
     Active Substance: OXYCODONE HYDROCHLORIDE
  15. OXINORM [Concomitant]

REACTIONS (1)
  - Pelvic abscess [Recovering/Resolving]

NARRATIVE: CASE EVENT DATE: 20180517
